FAERS Safety Report 9074672 (Version 1)
Quarter: 2013Q1

REPORT INFORMATION
  Report Type: Report from Study
  Country: US (occurrence: US)
  Receive Date: 20130129
  Receipt Date: 20130129
  Transmission Date: 20140127
  Serious: No
  Sender: FDA-Public Use
  Company Number: US-ABBOTT-12P-163-0931623-00

PATIENT
  Age: 35 Year
  Sex: Female

DRUGS (8)
  1. HUMIRA 40 MG/0.8 ML PEN [Suspect]
     Indication: PSORIASIS
     Dates: start: 2010, end: 201111
  2. HUMIRA 40 MG/0.8 ML PEN [Suspect]
     Dates: start: 20120424, end: 20120424
  3. HUMIRA 40 MG/0.8 ML PEN [Suspect]
     Dates: start: 20120501
  4. CRYSELLE-28 [Concomitant]
     Indication: CONTRACEPTION
  5. TRIAMCINOLONE [Concomitant]
     Indication: PRODUCT USED FOR UNKNOWN INDICATION
     Dosage: 1-2X/DAY. ROTATING W/ CLOBETASOL Q 2 W
     Dates: end: 201111
  6. TRIAMCINOLONE [Concomitant]
     Dates: start: 201203
  7. CLOBETASOL PROPIONATE [Concomitant]
     Indication: PRODUCT USED FOR UNKNOWN INDICATION
     Dosage: ROTATE BETWEEN TRIAMCINOLONE Q 2 W
     Dates: end: 201111
  8. CLOBETASOL PROPIONATE [Concomitant]
     Dates: start: 201203

REACTIONS (8)
  - Stress [Not Recovered/Not Resolved]
  - Device malfunction [Not Recovered/Not Resolved]
  - Injection site haemorrhage [Not Recovered/Not Resolved]
  - Injection site erythema [Not Recovered/Not Resolved]
  - Injection site pruritus [Not Recovered/Not Resolved]
  - Blood cholesterol increased [Recovering/Resolving]
  - Psoriasis [Not Recovered/Not Resolved]
  - Drug dose omission [Not Recovered/Not Resolved]
